FAERS Safety Report 11762000 (Version 1)
Quarter: 2015Q4

REPORT INFORMATION
  Report Type: Spontaneous
  Country: JP (occurrence: JP)
  Receive Date: 20151120
  Receipt Date: 20151120
  Transmission Date: 20160304
  Serious: Yes (Death, Other)
  Sender: FDA-Public Use
  Company Number: JP-PFIZER INC-2015400648

PATIENT
  Age: 68 Year
  Sex: Female

DRUGS (10)
  1. ELPLAT [Suspect]
     Active Substance: OXALIPLATIN
     Indication: COLON CANCER
     Dosage: 85 MG/M2, CYCLIC (1X/DAY)
     Route: 041
     Dates: start: 201010
  2. VECTIBIX [Concomitant]
     Active Substance: PANITUMUMAB
     Indication: COLON CANCER
     Dosage: 6 MG/KG, CYCLIC
     Route: 041
     Dates: start: 201010
  3. TRICHLORMETHIAZIDE [Concomitant]
     Active Substance: TRICHLORMETHIAZIDE
     Dosage: UNK
  4. 5-FU [Concomitant]
     Active Substance: FLUOROURACIL
     Indication: COLON CANCER
     Dosage: 400 MG/M2, CYCLIC
     Route: 040
     Dates: start: 201010
  5. FUROSEMIDE. [Concomitant]
     Active Substance: FUROSEMIDE
     Dosage: UNK
  6. SPIRONOLACTONE. [Concomitant]
     Active Substance: SPIRONOLACTONE
     Dosage: UNK
  7. AVASTIN [Concomitant]
     Active Substance: BEVACIZUMAB
     Indication: COLON CANCER
     Dosage: 5 MG/KG, CYCLIC
     Route: 041
     Dates: start: 201105
  8. LEVOFOLINATE CALCIUM [Concomitant]
     Active Substance: LEUCOVORIN CALCIUM
     Indication: COLON CANCER
     Dosage: 200 MG/M2, CYCLIC
     Route: 041
     Dates: start: 201010
  9. 5-FU [Concomitant]
     Active Substance: FLUOROURACIL
     Dosage: 2400 MG/M2/D1-2, CYCLIC
     Route: 041
     Dates: start: 201010
  10. CAMPTO [Suspect]
     Active Substance: IRINOTECAN
     Indication: COLON CANCER
     Dosage: 150 MG/M2, CYCLIC (1X/DAY)
     Route: 041
     Dates: start: 201105

REACTIONS (4)
  - Deep vein thrombosis [Unknown]
  - Type IV hypersensitivity reaction [Unknown]
  - Skin disorder [Unknown]
  - Blood albumin decreased [Unknown]
